FAERS Safety Report 23464591 (Version 1)
Quarter: 2024Q1

REPORT INFORMATION
  Report Type: Spontaneous
  Country: GB (occurrence: GB)
  Receive Date: 20240201
  Receipt Date: 20240201
  Transmission Date: 20240410
  Serious: Yes (Other)
  Sender: FDA-Public Use
  Company Number: None

PATIENT
  Age: 77 Year
  Sex: Male
  Weight: 86 kg

DRUGS (11)
  1. RAMIPRIL [Suspect]
     Active Substance: RAMIPRIL
     Indication: Product used for unknown indication
     Dates: start: 20231204, end: 20240120
  2. AMLODIPINE [Concomitant]
     Active Substance: AMLODIPINE BESYLATE
     Indication: Blood pressure measurement
     Dates: start: 20230911
  3. ASPIRIN [Concomitant]
     Active Substance: ASPIRIN
     Dosage: AS DIRECTED BY THE HAEMATOLOGIST
     Dates: start: 20230911
  4. TRIPTORELIN [Concomitant]
     Active Substance: TRIPTORELIN
     Route: 030
     Dates: start: 20220712
  5. DOXAZOSIN [Concomitant]
     Active Substance: DOXAZOSIN MESYLATE
     Dates: start: 20240120
  6. FINASTERIDE [Concomitant]
     Active Substance: FINASTERIDE
     Indication: Prostatomegaly
     Dates: start: 20230911, end: 20231122
  7. HYDROXYUREA [Concomitant]
     Active Substance: HYDROXYUREA
     Dates: start: 20230911
  8. PENICILLIN V [Concomitant]
     Active Substance: PENICILLIN V
     Dosage: OR POST SPLENECTOMY OR LIFE...
     Dates: start: 20230911
  9. ROSUVASTATIN [Concomitant]
     Active Substance: ROSUVASTATIN
     Dates: start: 20230911
  10. TAMSULOSIN HYDROCHLORIDE [Concomitant]
     Active Substance: TAMSULOSIN HYDROCHLORIDE
     Dates: start: 20230911
  11. RAMIPRIL [Suspect]
     Active Substance: RAMIPRIL
     Indication: Product used for unknown indication
     Route: 048

REACTIONS (4)
  - Urinary retention [Recovered/Resolved]
  - Prostatism [Unknown]
  - Urine flow decreased [Unknown]
  - Dysuria [Unknown]
